FAERS Safety Report 7652904-4 (Version None)
Quarter: 2011Q3

REPORT INFORMATION
  Report Type: 
  Country: None (occurrence: None)
  Receive Date: 20110803
  Receipt Date: 20110725
  Transmission Date: 20111222
  Serious: Yes (Other)
  Sender: FDA-Public Use
  Company Number: BR-JNJFOC-20110710912

PATIENT
  Age: 17 Year
  Sex: Female

DRUGS (5)
  1. CLONAZEPAM [Concomitant]
     Route: 065
  2. FLUOXETINE HCL [Concomitant]
     Route: 065
  3. AKINETON [Concomitant]
     Route: 065
  4. HALDOL [Suspect]
     Indication: BIPOLAR DISORDER
     Route: 065
     Dates: start: 20110708
  5. UNKNOWN MEDICATION [Concomitant]
     Route: 065

REACTIONS (4)
  - HAEMATEMESIS [None]
  - BLOOD URINE PRESENT [None]
  - HALLUCINATION [None]
  - DEPRESSION [None]
